FAERS Safety Report 15319733 (Version 1)
Quarter: 2018Q3

REPORT INFORMATION
  Report Type: Spontaneous
  Country: US (occurrence: US)
  Receive Date: 20180827
  Receipt Date: 20180827
  Transmission Date: 20181010
  Serious: No
  Sender: FDA-Public Use
  Company Number: US-ORPHAN EUROPE-2054247

PATIENT
  Age: 71 Year
  Sex: Female
  Weight: 80 kg

DRUGS (1)
  1. CARBAGLU [Suspect]
     Active Substance: CARGLUMIC ACID
     Indication: HYPERAMMONAEMIA

REACTIONS (1)
  - Diarrhoea [Not Recovered/Not Resolved]

NARRATIVE: CASE EVENT DATE: 20161025
